FAERS Safety Report 5370563-0 (Version None)
Quarter: 2007Q2

REPORT INFORMATION
  Report Type: 
  Country: None (occurrence: None)
  Receive Date: 20070626
  Receipt Date: 20070615
  Transmission Date: 20071010
  Serious: Yes (Hospitalization)
  Sender: FDA-Public Use
  Company Number: FR-GILEAD-2007-0012452

PATIENT
  Age: 29 Year
  Sex: Male

DRUGS (9)
  1. TRUVADA [Suspect]
     Indication: HIV INFECTION
     Route: 048
     Dates: start: 20060923, end: 20060924
  2. KALETRA [Suspect]
     Indication: HIV INFECTION
     Route: 048
     Dates: start: 20060923, end: 20061019
  3. COMBIVIR [Suspect]
     Route: 048
     Dates: start: 20061018, end: 20061019
  4. ROCEPHIN [Concomitant]
     Dates: start: 20060908
  5. CIFLOX [Concomitant]
     Dates: start: 20060829, end: 20060907
  6. PYOSTACINE [Concomitant]
     Dates: start: 20060829, end: 20060907
  7. FLAGYL [Concomitant]
     Dates: start: 20060908
  8. AUGMENTIN '125' [Concomitant]
     Dates: start: 20060822, end: 20060828
  9. CEFTRIAXONE [Concomitant]
     Dates: end: 20060901

REACTIONS (4)
  - AGRANULOCYTOSIS [None]
  - BLOOD TRIGLYCERIDES INCREASED [None]
  - PYREXIA [None]
  - RENAL FAILURE [None]
